FAERS Safety Report 6542041-4 (Version None)
Quarter: 2010Q1

REPORT INFORMATION
  Report Type: 
  Country: None (occurrence: None)
  Receive Date: 20100119
  Receipt Date: 20100113
  Transmission Date: 20100710
  Serious: Yes (Death, Other)
  Sender: FDA-Public Use
  Company Number: US-ASTRAZENECA-2009SE29800

PATIENT
  Age: 11996 Day
  Sex: Female

DRUGS (3)
  1. SEROQUEL [Suspect]
     Indication: NERVOUSNESS
     Route: 048
     Dates: end: 20070815
  2. XANAX [Suspect]
  3. DRUG FOR PAIN [Concomitant]
     Indication: PAIN
     Dates: end: 20070815

REACTIONS (3)
  - ACCIDENTAL OVERDOSE [None]
  - CONVULSION [None]
  - DRUG DOSE OMISSION [None]
